FAERS Safety Report 5802674-7 (Version None)
Quarter: 2008Q3

REPORT INFORMATION
  Report Type: 
  Country: None (occurrence: None)
  Receive Date: 20080708
  Receipt Date: 20080708
  Transmission Date: 20090109
  Serious: Yes (Other)
  Sender: FDA-Public Use
  Company Number: None

PATIENT
  Age: 54 Year
  Sex: Female

DRUGS (1)
  1. HEPARIN SODIUM [Suspect]
     Dosage: 5000 UNITS Q8H SQ
     Route: 058
     Dates: start: 20071001, end: 20071101

REACTIONS (4)
  - HEADACHE [None]
  - HYPOTENSION [None]
  - URTICARIA [None]
  - VOMITING [None]
